FAERS Safety Report 24828093 (Version 1)
Quarter: 2025Q1

REPORT INFORMATION
  Report Type: Spontaneous
  Country: US (occurrence: US)
  Receive Date: 20250109
  Receipt Date: 20250109
  Transmission Date: 20250409
  Serious: Yes (Other)
  Sender: AMGEN
  Company Number: US-AMGEN-USASP2025000027

PATIENT
  Age: 43 Year
  Sex: Female

DRUGS (2)
  1. RITUXIMAB [Suspect]
     Active Substance: RITUXIMAB
     Indication: Coeliac disease
     Route: 065
  2. RITUXIMAB [Suspect]
     Active Substance: RITUXIMAB
     Indication: Demyelination

REACTIONS (4)
  - Autoimmune hepatitis [Unknown]
  - Abdominal lymphadenopathy [Unknown]
  - Spleen atrophy [Unknown]
  - Off label use [Unknown]
